FAERS Safety Report 10718101 (Version 1)
Quarter: 2015Q1

REPORT INFORMATION
  Report Type: Spontaneous
  Country: GB (occurrence: GB)
  Receive Date: 20150117
  Receipt Date: 20150117
  Transmission Date: 20150721
  Serious: Yes (Life-Threatening)
  Sender: FDA-Public Use
  Company Number: GB-009507513-1501GBR005454

PATIENT
  Age: 74 Year
  Sex: Female
  Weight: 73.29 kg

DRUGS (14)
  1. ADCAL (CALCIUM CARBONATE) [Concomitant]
     Active Substance: CALCIUM CARBONATE
     Dates: start: 20140919, end: 20141017
  2. FUCIBET [Concomitant]
     Dates: start: 20141022, end: 20141105
  3. AMLODIPINE [Concomitant]
     Active Substance: AMLODIPINE BESYLATE
     Dates: start: 20140919
  4. LANSOPRAZOLE. [Concomitant]
     Active Substance: LANSOPRAZOLE
     Dates: start: 20140919
  5. AMITRIPTYLINE HYDROCHLORIDE. [Concomitant]
     Active Substance: AMITRIPTYLINE HYDROCHLORIDE
     Dates: start: 20141121, end: 20141205
  6. FUROSEMIDE. [Concomitant]
     Active Substance: FUROSEMIDE
     Dates: start: 20141022, end: 20141119
  7. SIMVASTATIN. [Suspect]
     Active Substance: SIMVASTATIN
     Dates: start: 20150107
  8. BISOPROLOL [Concomitant]
     Active Substance: BISOPROLOL
     Dates: start: 20140919
  9. ISOSORBIDE MONONITRATE. [Concomitant]
     Active Substance: ISOSORBIDE MONONITRATE
     Dates: start: 20140919
  10. SAXAGLIPTIN [Concomitant]
     Active Substance: SAXAGLIPTIN
     Dates: start: 20140919
  11. ASPIRIN. [Concomitant]
     Active Substance: ASPIRIN
     Dates: start: 20140919
  12. ACETAMINOPHEN (+) DIHYDROCODEINE BITARTRATE [Concomitant]
     Dates: start: 20141006, end: 20141011
  13. GLICLAZIDE [Concomitant]
     Active Substance: GLICLAZIDE
     Dates: start: 20140919
  14. HYDROMOL CREAM [Concomitant]
     Dates: start: 20141126

REACTIONS (1)
  - Acute kidney injury [Recovering/Resolving]

NARRATIVE: CASE EVENT DATE: 20150107
